FAERS Safety Report 23601865 (Version 1)
Quarter: 2024Q1

REPORT INFORMATION
  Report Type: Other
  Country: CN (occurrence: CN)
  Receive Date: 20240306
  Receipt Date: 20240306
  Transmission Date: 20240410
  Serious: Yes (Other)
  Sender: FDA-Public Use
  Company Number: CN-GE HEALTHCARE-2024CSU002091

PATIENT
  Age: 61 Year
  Sex: Male
  Weight: 90 kg

DRUGS (1)
  1. VISIPAQUE [Suspect]
     Active Substance: IODIXANOL
     Indication: Computerised tomogram heart
     Dosage: 100 ML, TOTAL
     Route: 041
     Dates: start: 20240221, end: 20240221

REACTIONS (5)
  - Dysphonia [Recovered/Resolved]
  - Stiff tongue [Recovered/Resolved]
  - Dyspnoea [Recovered/Resolved]
  - Conjunctival oedema [Recovered/Resolved]
  - Eyelid oedema [Recovered/Resolved]

NARRATIVE: CASE EVENT DATE: 20240221
